FAERS Safety Report 6683278-3 (Version None)
Quarter: 2010Q2

REPORT INFORMATION
  Report Type: 
  Country: None (occurrence: None)
  Receive Date: 20100415
  Receipt Date: 20100408
  Transmission Date: 20101027
  Serious: Yes (Other)
  Sender: FDA-Public Use
  Company Number: NSADSS2001011216

PATIENT
  Sex: Male

DRUGS (3)
  1. LEVOFLOXACIN [Suspect]
     Indication: ACUTE SINUSITIS
     Route: 048
     Dates: start: 20010315, end: 20010327
  2. LEVOFLOXACIN [Suspect]
     Route: 048
     Dates: start: 20010315, end: 20010327
  3. PARACETAMOL [Concomitant]
     Indication: DRUG USE FOR UNKNOWN INDICATION
     Route: 065
     Dates: start: 20010327

REACTIONS (4)
  - CONVULSION [None]
  - OCULOGYRIC CRISIS [None]
  - SYNCOPE [None]
  - TRISMUS [None]
